FAERS Safety Report 5491347-9 (Version None)
Quarter: 2007Q4

REPORT INFORMATION
  Report Type: 
  Country: None (occurrence: None)
  Receive Date: 20071017
  Receipt Date: 20071004
  Transmission Date: 20080405
  Serious: Yes (Life-Threatening, Hospitalization, Other)
  Sender: FDA-Public Use
  Company Number: VER_00081_2007

PATIENT
  Sex: Male
  Weight: 11.3399 kg

DRUGS (1)
  1. EPINEPHRINE [Suspect]
     Indication: ANAPHYLACTIC REACTION
     Dosage: 0.15 MG INTRAMUSCULAR/ SUBCUTANEOUS
     Route: 030

REACTIONS (5)
  - APPLICATION SITE BRUISING [None]
  - DEVICE MALFUNCTION [None]
  - HYPOXIA [None]
  - PHARMACEUTICAL PRODUCT COMPLAINT [None]
  - WRONG TECHNIQUE IN DRUG USAGE PROCESS [None]
